FAERS Safety Report 9919076 (Version 1)
Quarter: 2014Q1

REPORT INFORMATION
  Report Type: Spontaneous
  Country: US (occurrence: US)
  Receive Date: 20140224
  Receipt Date: 20140224
  Transmission Date: 20141002
  Serious: No
  Sender: FDA-Public Use
  Company Number: US-BAYER-2014-028377

PATIENT
  Age: 45 Year
  Sex: Female
  Weight: 97.05 kg

DRUGS (1)
  1. ALEVE CAPLET [Suspect]
     Indication: PAIN
     Dosage: 1-2 DF
     Route: 048
     Dates: start: 201402

REACTIONS (2)
  - Drug ineffective [None]
  - Incorrect drug administration duration [None]
